FAERS Safety Report 18706818 (Version 2)
Quarter: 2021Q1

REPORT INFORMATION
  Report Type: Report from Study
  Country: US (occurrence: US)
  Receive Date: 20210106
  Receipt Date: 20210107
  Transmission Date: 20210419
  Serious: Yes (Hospitalization)
  Sender: FDA-Public Use
  Company Number: US-JNJFOC-20201220431

PATIENT
  Age: 1 Year
  Sex: Female

DRUGS (2)
  1. BOSENTAN. [Suspect]
     Active Substance: BOSENTAN
     Indication: PULMONARY ARTERIAL HYPERTENSION
     Dosage: 1/2 TABLET TWICE DAILY
     Route: 048
  2. SILDENAFIL CITRATE. [Concomitant]
     Active Substance: SILDENAFIL CITRATE

REACTIONS (6)
  - Seizure [Unknown]
  - Product administered to patient of inappropriate age [Unknown]
  - Hospitalisation [Unknown]
  - Off label use [Unknown]
  - Pulmonary hypertension [Unknown]
  - Pneumonia [Unknown]

NARRATIVE: CASE EVENT DATE: 20201123
